FAERS Safety Report 24175443 (Version 2)
Quarter: 2024Q3

REPORT INFORMATION
  Report Type: Spontaneous
  Country: TR (occurrence: TR)
  Receive Date: 20240805
  Receipt Date: 20240807
  Transmission Date: 20241016
  Serious: Yes (Hospitalization, Other)
  Sender: NOVARTIS
  Company Number: TR-002147023-NVSC2024TR156445

PATIENT
  Age: 21 Year
  Sex: Male

DRUGS (1)
  1. DESFERAL [Suspect]
     Active Substance: DEFEROXAMINE MESYLATE
     Indication: Thalassaemia
     Dosage: UNK (VIAL)
     Route: 065

REACTIONS (5)
  - Serum ferritin increased [Unknown]
  - Multi-organ disorder [Unknown]
  - Skin discolouration [Unknown]
  - Asthenia [Unknown]
  - Product supply issue [Unknown]
